FAERS Safety Report 9056617 (Version 1)
Quarter: 2013Q1

REPORT INFORMATION
  Report Type: Spontaneous
  Country: US (occurrence: US)
  Receive Date: 20130204
  Receipt Date: 20130204
  Transmission Date: 20140127
  Serious: Yes (Hospitalization)
  Sender: FDA-Public Use
  Company Number: US-GILEAD-2013-0068197

PATIENT
  Sex: Female

DRUGS (3)
  1. LETAIRIS [Suspect]
     Indication: COR PULMONALE CHRONIC
     Dosage: 5 MG, QD
     Dates: start: 20130115
  2. TYVASO [Concomitant]
  3. ADCIRCA [Concomitant]

REACTIONS (8)
  - Hepatomegaly [Unknown]
  - Urinary tract infection [Unknown]
  - Dysphonia [Unknown]
  - Cough [Unknown]
  - Headache [Unknown]
  - Fluid retention [Unknown]
  - Oedema peripheral [Unknown]
  - Oedema [Unknown]
